FAERS Safety Report 7035163-5 (Version None)
Quarter: 2010Q4

REPORT INFORMATION
  Report Type: 
  Country: None (occurrence: None)
  Receive Date: 20101008
  Receipt Date: 20100929
  Transmission Date: 20110411
  Serious: Yes (Disabling)
  Sender: FDA-Public Use
  Company Number: US-BAYER-201012198NA

PATIENT
  Age: 41 Year
  Sex: Male

DRUGS (1)
  1. VARDENAFIL HYDROCHLORIDE (LEVITRA) [Suspect]
     Indication: ERECTILE DYSFUNCTION
     Route: 048
     Dates: start: 20091231

REACTIONS (4)
  - BLINDNESS UNILATERAL [None]
  - OPTIC ISCHAEMIC NEUROPATHY [None]
  - OPTIC NERVE INJURY [None]
  - VISUAL FIELD DEFECT [None]
